FAERS Safety Report 25617813 (Version 1)
Quarter: 2025Q3

REPORT INFORMATION
  Report Type: Spontaneous
  Country: US (occurrence: None)
  Receive Date: 20250729
  Receipt Date: 20250729
  Transmission Date: 20251021
  Serious: Yes (Hospitalization)
  Sender: FDA-CTU
  Company Number: None

PATIENT
  Age: 80 Year
  Sex: Female
  Weight: 57.2 kg

DRUGS (1)
  1. EVEROLIMUS [Suspect]
     Active Substance: EVEROLIMUS
     Dates: start: 20241021, end: 20250606

REACTIONS (2)
  - Syncope [None]
  - Supraventricular tachycardia [None]

NARRATIVE: CASE EVENT DATE: 20250608
